FAERS Safety Report 6710493-2 (Version None)
Quarter: 2010Q2

REPORT INFORMATION
  Report Type: 
  Country: None (occurrence: None)
  Receive Date: 20100430
  Receipt Date: 20100426
  Transmission Date: 20101027
  Serious: Yes (Hospitalization)
  Sender: FDA-Public Use
  Company Number: 2009SP020214

PATIENT
  Age: 33 Year
  Sex: Female

DRUGS (3)
  1. PUREGON (FOLLITROPIN BETA / 01348901 / ) [Suspect]
     Indication: OVARIAN HYPERSTIMULATION SYNDROME
     Dosage: 225 IU;QD;SC
     Route: 058
     Dates: start: 20090611, end: 20090616
  2. GONADORELIN (GONADORELIN /00486501/) [Suspect]
     Indication: OVARIAN HYPERSTIMULATION SYNDROME
     Dosage: 1 DF;QD;SC;  0.5 DF;QD;SC
     Route: 058
     Dates: start: 20090501, end: 20090611
  3. GONADORELIN (GONADORELIN /00486501/) [Suspect]
     Indication: OVARIAN HYPERSTIMULATION SYNDROME
     Dosage: 1 DF;QD;SC;  0.5 DF;QD;SC
     Route: 058
     Dates: start: 20090611, end: 20090616

REACTIONS (4)
  - GENERAL PHYSICAL HEALTH DETERIORATION [None]
  - NORMOCHROMIC NORMOCYTIC ANAEMIA [None]
  - OESOPHAGITIS [None]
  - TACHYCARDIA [None]
